FAERS Safety Report 15427525 (Version 3)
Quarter: 2018Q4

REPORT INFORMATION
  Report Type: Spontaneous
  Country: JP (occurrence: JP)
  Receive Date: 20180925
  Receipt Date: 20181001
  Transmission Date: 20190204
  Serious: Yes (Other)
  Sender: FDA-Public Use
  Company Number: PHJP2018JP016683

PATIENT
  Age: 61 Year
  Sex: Male

DRUGS (2)
  1. SANDOSTATINA LAR IM INJECTION [Suspect]
     Active Substance: OCTREOTIDE ACETATE
     Indication: NEUROENDOCRINE TUMOUR
     Dosage: 30 MG, UNK
     Route: 030
     Dates: start: 20180206, end: 201809
  2. SANDOSTATINA LAR IM INJECTION [Suspect]
     Active Substance: OCTREOTIDE ACETATE
     Dosage: 30 MG, UNK
     Route: 030

REACTIONS (2)
  - Discomfort [Recovered/Resolved]
  - Injection site necrosis [Recovered/Resolved]

NARRATIVE: CASE EVENT DATE: 20180828
